FAERS Safety Report 9795448 (Version 1)
Quarter: 2014Q1

REPORT INFORMATION
  Report Type: Spontaneous
  Country: US (occurrence: US)
  Receive Date: 20140103
  Receipt Date: 20140103
  Transmission Date: 20141002
  Serious: Yes (Other)
  Sender: FDA-Public Use
  Company Number: US-ROCHE-1325119

PATIENT
  Age: 63 Year
  Sex: Female

DRUGS (9)
  1. CAPECITABINE [Suspect]
     Indication: PANCREATIC CARCINOMA METASTATIC
     Route: 048
  2. OMEPRAZOLE [Concomitant]
  3. CELECOXIB [Concomitant]
  4. ENOXAPARIN [Concomitant]
  5. ATENOLOL [Concomitant]
  6. LORAZEPAM [Concomitant]
  7. PROCHLORPERAZINE [Concomitant]
  8. HYDROMORPHONE [Concomitant]
  9. LIDOCAINE/PRILOCAINE [Concomitant]

REACTIONS (1)
  - Retinopathy haemorrhagic [Recovered/Resolved]
